FAERS Safety Report 16416871 (Version 1)
Quarter: 2019Q2

REPORT INFORMATION
  Report Type: Spontaneous
  Country: ES (occurrence: ES)
  Receive Date: 20190611
  Receipt Date: 20190611
  Transmission Date: 20190711
  Serious: Yes (Hospitalization)
  Sender: FDA-Public Use
  Company Number: ES-SA-2019SA149256

PATIENT
  Age: 69 Year
  Sex: Male

DRUGS (1)
  1. CABAZITAXEL [Suspect]
     Active Substance: CABAZITAXEL
     Indication: PROSTATE CANCER STAGE IV
     Dosage: 25 MG/M2, QD
     Route: 042
     Dates: start: 20190108, end: 20190221

REACTIONS (2)
  - Febrile neutropenia [Recovered/Resolved]
  - Listeriosis [Recovered/Resolved]

NARRATIVE: CASE EVENT DATE: 20190227
